FAERS Safety Report 8062529-7 (Version None)
Quarter: 2012Q1

REPORT INFORMATION
  Report Type: 
  Country: None (occurrence: None)
  Receive Date: 20120117
  Receipt Date: 20120103
  Transmission Date: 20120608
  Serious: Yes (Hospitalization)
  Sender: FDA-Public Use
  Company Number: B0774723A

PATIENT
  Sex: Female

DRUGS (1)
  1. VALACYCLOVIR HYDROCHLORIDE [Suspect]
     Indication: PRODUCT USED FOR UNKNOWN INDICATION
     Dosage: TRANSPLACENTARY
     Route: 064

REACTIONS (11)
  - HYPOTONIA [None]
  - MUSCLE TWITCHING [None]
  - INTRACRANIAL PRESSURE INCREASED [None]
  - FONTANELLE BULGING [None]
  - FACIAL ASYMMETRY [None]
  - CONVULSION NEONATAL [None]
  - BRAIN HERNIATION [None]
  - CAESAREAN SECTION [None]
  - MATERNAL DRUGS AFFECTING FOETUS [None]
  - RESPIRATION ABNORMAL [None]
  - SUBDURAL HAEMORRHAGE NEONATAL [None]
